FAERS Safety Report 4762434-5 (Version None)
Quarter: 2005Q3

REPORT INFORMATION
  Report Type: 
  Country: None (occurrence: None)
  Receive Date: 20050901
  Receipt Date: 20050525
  Transmission Date: 20060218
  Serious: No
  Sender: FDA-Public Use
  Company Number: 200511062BWH

PATIENT
  Sex: Male

DRUGS (4)
  1. LEVITRA [Suspect]
     Dosage: 10 MG, TOTAL DAILY ORAL; 20 MG, TOTAL DAILY, ORAL; 20 MG, PRN, ORAL; 20  MG PRN, ORAL
     Route: 048
  2. LEVITRA [Suspect]
     Dosage: 10 MG, TOTAL DAILY ORAL; 20 MG, TOTAL DAILY, ORAL; 20 MG, PRN, ORAL; 20  MG PRN, ORAL
     Route: 048
     Dates: start: 20050501
  3. PROZAC [Concomitant]
  4. CIALIS [Concomitant]

REACTIONS (3)
  - ANORGASMIA [None]
  - DRUG INEFFECTIVE [None]
  - ERECTILE DYSFUNCTION [None]
